FAERS Safety Report 19074180 (Version 1)
Quarter: 2021Q1

REPORT INFORMATION
  Report Type: Spontaneous
  Country: DE (occurrence: DE)
  Receive Date: 20210330
  Receipt Date: 20210330
  Transmission Date: 20210420
  Serious: Yes (Life-Threatening, Other)
  Sender: FDA-Public Use
  Company Number: DE-ACELRX PHARMACEUTICALS, INC-ACEL20210044

PATIENT
  Age: 58 Year
  Sex: Female

DRUGS (1)
  1. ZALVISO [Suspect]
     Active Substance: SUFENTANIL CITRATE
     Indication: PROCEDURAL PAIN
     Route: 060
     Dates: start: 20210317, end: 20210317

REACTIONS (2)
  - Cardiac arrest [Recovered/Resolved]
  - Respiratory depression [Recovered/Resolved]

NARRATIVE: CASE EVENT DATE: 20210317
